FAERS Safety Report 5739664-9 (Version None)
Quarter: 2008Q2

REPORT INFORMATION
  Report Type: 
  Country: None (occurrence: None)
  Receive Date: 20080513
  Receipt Date: 20080428
  Transmission Date: 20081010
  Serious: Yes (Death, Hospitalization)
  Sender: FDA-Public Use
  Company Number: 2008S1005577

PATIENT
  Age: 81 Year
  Sex: Female

DRUGS (12)
  1. AZATHIOPRINE [Suspect]
     Indication: IMMUNOSUPPRESSANT DRUG THERAPY
     Dosage: 50 MG;DAILY
  2. PREDNISOLONE [Suspect]
     Indication: IMMUNOSUPPRESSANT DRUG THERAPY
     Dosage: 60 MG;DAILY
  3. DOXAZOSIN (DOXAZOSIN) [Suspect]
     Indication: DRUG USE FOR UNKNOWN INDICATION
     Dosage: ORAL
     Route: 048
  4. BENZYLPENICILLIN (BENZYLPENICILLIN) [Concomitant]
  5. CIPROFLOXACIN [Concomitant]
  6. GENTAMICIN [Concomitant]
  7. TEICOPLANIN (TEICOPLANIN) [Concomitant]
  8. ASPIRIN [Concomitant]
  9. ATENOLOL [Concomitant]
  10. STATIN (NYSTATIN) [Concomitant]
  11. DOXAZOSIN (DOXAZOSIN MESILATE) [Concomitant]
  12. PREDNISOLONE [Concomitant]

REACTIONS (6)
  - CONFUSIONAL STATE [None]
  - FALL [None]
  - HODGKIN'S DISEASE [None]
  - PNEUMOCYSTIS JIROVECI PNEUMONIA [None]
  - PNEUMONIA [None]
  - RESPIRATORY DISORDER [None]
